FAERS Safety Report 11375054 (Version 2)
Quarter: 2015Q3

REPORT INFORMATION
  Report Type: Spontaneous
  Country: US (occurrence: US)
  Receive Date: 20150813
  Receipt Date: 20150818
  Transmission Date: 20151125
  Serious: Yes (Hospitalization, Other)
  Sender: FDA-Public Use
  Company Number: US-ROCHE-1621015

PATIENT
  Age: 64 Year
  Sex: Female
  Weight: 74.46 kg

DRUGS (1)
  1. ESBRIET [Suspect]
     Active Substance: PIRFENIDONE
     Indication: IDIOPATHIC PULMONARY FIBROSIS
     Route: 048
     Dates: start: 20141212

REACTIONS (3)
  - Angina pectoris [Unknown]
  - Chest pain [Unknown]
  - Blood magnesium decreased [Unknown]

NARRATIVE: CASE EVENT DATE: 20150720
